FAERS Safety Report 14891814 (Version 1)
Quarter: 2018Q2

REPORT INFORMATION
  Report Type: Spontaneous
  Country: RO (occurrence: RO)
  Receive Date: 20180514
  Receipt Date: 20180514
  Transmission Date: 20180711
  Serious: Yes (Hospitalization, Disabling)
  Sender: FDA-Public Use
  Company Number: RO-SA-2018SA127490

PATIENT
  Age: 69 Year
  Sex: Female

DRUGS (2)
  1. INDAPAMIDE. [Suspect]
     Active Substance: INDAPAMIDE
     Route: 065
  2. INSULIN [Concomitant]
     Active Substance: INSULIN NOS
     Indication: TYPE 1 DIABETES MELLITUS

REACTIONS (4)
  - Renal impairment [Recovered/Resolved]
  - Hypervolaemia [Recovered/Resolved]
  - Treatment noncompliance [Unknown]
  - Hyponatraemia [Recovered/Resolved]
